FAERS Safety Report 14139300 (Version 2)
Quarter: 2017Q4

REPORT INFORMATION
  Report Type: Spontaneous
  Country: PL (occurrence: PL)
  Receive Date: 20171028
  Receipt Date: 20171030
  Transmission Date: 20180321
  Serious: Yes (Life-Threatening, Other)
  Sender: FDA-Public Use
  Company Number: PL-SUN PHARMACEUTICAL INDUSTRIES LTD-2017RR-153068

PATIENT
  Age: 23 Year
  Sex: Female

DRUGS (3)
  1. SOTALOL. [Suspect]
     Active Substance: SOTALOL
     Indication: VENTRICULAR ARRHYTHMIA
     Dosage: UNK
     Route: 065
  2. RANOLAZINE. [Suspect]
     Active Substance: RANOLAZINE
     Indication: VENTRICULAR ARRHYTHMIA
     Dosage: UNK
     Route: 065
  3. PROPAFENONE. [Suspect]
     Active Substance: PROPAFENONE
     Indication: VENTRICULAR ARRHYTHMIA
     Dosage: UNK
     Route: 065

REACTIONS (2)
  - Sinus bradycardia [Recovered/Resolved]
  - Drug ineffective [Unknown]
